FAERS Safety Report 6740381-7 (Version None)
Quarter: 2010Q2

REPORT INFORMATION
  Report Type: 
  Country: None (occurrence: None)
  Receive Date: 20100525
  Receipt Date: 20100514
  Transmission Date: 20101027
  Serious: Yes (Death)
  Sender: FDA-Public Use
  Company Number: US-ELI_LILLY_AND_COMPANY-US201005004134

PATIENT
  Age: 22 Year
  Sex: Male

DRUGS (3)
  1. ZYPREXA [Suspect]
     Indication: MOOD SWINGS
     Dosage: 2.5 MG, UNK
  2. METHADONE [Concomitant]
  3. ALCOHOL [Concomitant]

REACTIONS (2)
  - ASPIRATION [None]
  - OFF LABEL USE [None]
